FAERS Safety Report 8962666 (Version 1)
Quarter: 2012Q4

REPORT INFORMATION
  Report Type: 
  Country: US (occurrence: US)
  Receive Date: 20121214
  Receipt Date: 20121214
  Transmission Date: 20130627
  Serious: No
  Sender: FDA-Public Use
  Company Number: US-BAYER-2012-129638

PATIENT
  Age: 59 Year
  Sex: Female
  Weight: 109 kg

DRUGS (4)
  1. ALEVE GELCAP [Suspect]
     Indication: ARTHRITIS
     Dosage: 4 DF, QD
     Route: 048
     Dates: start: 201211, end: 2012
  2. ALEVE CAPLET/TABLET,MIDOL EXTENDED RELIEF CAPLET [Suspect]
     Indication: ARTHRITIS
     Dosage: 4 DF, Other Frequency
     Route: 048
     Dates: start: 2011
  3. ATENOLOL [Concomitant]
  4. INSULIN [Concomitant]

REACTIONS (5)
  - Drug ineffective [None]
  - Overdose [None]
  - Overdose [None]
  - Incorrect drug administration duration [None]
  - Drug ineffective [None]
